FAERS Safety Report 23387182 (Version 1)
Quarter: 2024Q1

REPORT INFORMATION
  Report Type: Spontaneous
  Country: US (occurrence: None)
  Receive Date: 20240109
  Receipt Date: 20240109
  Transmission Date: 20240410
  Serious: No
  Sender: FDA-Public Use
  Company Number: None

PATIENT
  Age: 72 Year
  Sex: Male

DRUGS (9)
  1. LORBRENA [Suspect]
     Active Substance: LORLATINIB
     Indication: Lung neoplasm malignant
     Dosage: FREQUENCY : DAILY;?
     Route: 048
     Dates: start: 20231003, end: 20240103
  2. LORBRENA [Suspect]
     Active Substance: LORLATINIB
     Indication: Bronchial carcinoma
  3. AMLODIPINE [Concomitant]
     Active Substance: AMLODIPINE BESYLATE
     Dates: start: 20211026
  4. Clopidogrel 75mg tablet [Concomitant]
     Dates: start: 20220413
  5. ELIQUIS [Concomitant]
     Active Substance: APIXABAN
     Dates: start: 202401
  6. Famotidine 20mg tablet [Concomitant]
     Dates: start: 20220222
  7. Hydrocodone/Acetaminophen 5/325mg tablet [Concomitant]
     Dates: start: 20230203
  8. Levothyroxine 0.025mg tablet [Concomitant]
     Dates: start: 20220701
  9. Ondansetron ODT 4mg tablet [Concomitant]
     Dates: start: 20231021

REACTIONS (1)
  - Malignant neoplasm progression [None]

NARRATIVE: CASE EVENT DATE: 20240103
